FAERS Safety Report 8170948-3 (Version None)
Quarter: 2012Q1

REPORT INFORMATION
  Report Type: 
  Country: None (occurrence: None)
  Receive Date: 20120113
  Receipt Date: 20110928
  Transmission Date: 20120608
  Serious: No
  Sender: FDA-Public Use
  Company Number: 2011S1000094

PATIENT

DRUGS (1)
  1. KRYSTEXXA [Suspect]
     Indication: GOUT

REACTIONS (5)
  - WEIGHT DECREASED [None]
  - DRY EYE [None]
  - ASTHENIA [None]
  - GOUT [None]
  - DRY MOUTH [None]
